FAERS Safety Report 7953611-0 (Version None)
Quarter: 2011Q4

REPORT INFORMATION
  Report Type: 
  Country: None (occurrence: None)
  Receive Date: 20111129
  Receipt Date: 20111124
  Transmission Date: 20120403
  Serious: Yes (Other)
  Sender: FDA-Public Use
  Company Number: AUR-APL-2011-05730

PATIENT
  Age: 70 Year
  Sex: Female

DRUGS (5)
  1. VERAPAMIL [Suspect]
     Indication: ATRIAL FIBRILLATION
  2. LISINOPRIL [Suspect]
     Indication: HYPERTENSION
     Dosage: (10 MG),ORAL
     Route: 048
     Dates: start: 20110805, end: 20110907
  3. LOSARTAN POTASSIUM [Suspect]
     Indication: HYPERTENSION
     Dosage: (12.5 MG,1 D),ORAL ; (25 MG,1 D) ; (50 MG,1 D)
     Dates: start: 20110922
  4. LOSARTAN POTASSIUM [Suspect]
     Indication: HYPERTENSION
     Dosage: (12.5 MG,1 D),ORAL ; (25 MG,1 D) ; (50 MG,1 D)
     Dates: start: 20110907
  5. BETA BLOCKERS (BETA BLOCKERS AGENTS) [Suspect]
     Indication: ATRIAL FIBRILLATION

REACTIONS (16)
  - ARTHRALGIA [None]
  - DRY EYE [None]
  - COUGH [None]
  - OROPHARYNGEAL PAIN [None]
  - DIARRHOEA [None]
  - FIBROMYALGIA [None]
  - PHARYNGEAL OEDEMA [None]
  - RASH ERYTHEMATOUS [None]
  - DRY MOUTH [None]
  - ATRIAL FIBRILLATION [None]
  - URINARY INCONTINENCE [None]
  - MUSCLE SPASMS [None]
  - CONDITION AGGRAVATED [None]
  - DECREASED APPETITE [None]
  - SLEEP DISORDER [None]
  - ABDOMINAL PAIN [None]
